FAERS Safety Report 16419769 (Version 2)
Quarter: 2019Q3

REPORT INFORMATION
  Report Type: Report from Study
  Country: US (occurrence: US)
  Receive Date: 20190612
  Receipt Date: 20190708
  Transmission Date: 20191004
  Serious: Yes (Hospitalization, Other)
  Sender: FDA-Public Use
  Company Number: US-PFIZER INC-2019222777

PATIENT
  Age: 66 Year
  Sex: Female

DRUGS (1)
  1. IBRANCE [Suspect]
     Active Substance: PALBOCICLIB
     Indication: BREAST CANCER
     Dosage: 125 MG, CYCLIC [DAILY FOR 21 DAYS, THEN 7 DAYS OFF]
     Route: 048
     Dates: start: 20190507

REACTIONS (13)
  - Dyspepsia [Recovering/Resolving]
  - Leukopenia [Unknown]
  - Ocular discomfort [Not Recovered/Not Resolved]
  - Nausea [Recovering/Resolving]
  - Decreased appetite [Unknown]
  - Eye discharge [Not Recovered/Not Resolved]
  - Fatigue [Unknown]
  - Cerebrovascular accident [Unknown]
  - Feeling cold [Unknown]
  - White blood cell count decreased [Unknown]
  - Visual impairment [Not Recovered/Not Resolved]
  - Ocular hyperaemia [Not Recovered/Not Resolved]
  - Abdominal pain upper [Unknown]

NARRATIVE: CASE EVENT DATE: 2019
